FAERS Safety Report 5912413-7 (Version None)
Quarter: 2008Q4

REPORT INFORMATION
  Report Type: 
  Country: None (occurrence: None)
  Receive Date: 20081008
  Receipt Date: 20080926
  Transmission Date: 20090506
  Serious: Yes (Hospitalization)
  Sender: FDA-Public Use
  Company Number: US-WATSON-2008-05291

PATIENT
  Sex: Female
  Weight: 58.503 kg

DRUGS (1)
  1. LOW-OGESTREL-21 [Suspect]
     Indication: CONTRACEPTION
     Dosage: 1 TABLET, DAILY
     Route: 048
     Dates: start: 20080312, end: 20080817

REACTIONS (4)
  - CEREBRAL VENOUS THROMBOSIS [None]
  - CONVULSION [None]
  - HEADACHE [None]
  - INSOMNIA [None]
